FAERS Safety Report 5415060-9 (Version None)
Quarter: 2007Q3

REPORT INFORMATION
  Report Type: 
  Country: None (occurrence: None)
  Receive Date: 20070815
  Receipt Date: 20070509
  Transmission Date: 20080115
  Serious: Yes (Other)
  Sender: FDA-Public Use
  Company Number: A0650632A

PATIENT
  Age: 73 Year
  Sex: Male

DRUGS (6)
  1. COREG CR [Suspect]
     Indication: HYPERTENSION
     Dosage: 40MG PER DAY
     Route: 048
  2. WARFARIN SODIUM [Concomitant]
  3. ACCUPRIL [Concomitant]
  4. LANTUS [Concomitant]
  5. UNKNOWN [Concomitant]
  6. LIPITOR [Concomitant]

REACTIONS (4)
  - DIZZINESS [None]
  - FATIGUE [None]
  - HYPOGLYCAEMIA [None]
  - THERAPEUTIC RESPONSE UNEXPECTED [None]
